FAERS Safety Report 8622353 (Version 2)
Quarter: 2012Q4

REPORT INFORMATION
  Report Type: 
  Country: KR (occurrence: KR)
  Receive Date: 20120619
  Receipt Date: 20121003
  Transmission Date: 20130627
  Serious: Yes (Hospitalization)
  Sender: FDA-Public Use
  Company Number: KR-COVIDIEN/TYCO HEALTHCARE/MALLINCKRODT-T201201936

PATIENT
  Age: 80 Year
  Sex: Male
  Weight: 45 kg

DRUGS (16)
  1. EXALGO EXTENDED RELEASE [Suspect]
     Indication: PAIN MANAGEMENT
     Dosage: 4 mg, qd
     Route: 048
     Dates: start: 20120509, end: 20120604
  2. EXALGO EXTENDED RELEASE [Suspect]
     Dosage: 8 mg, qd
     Route: 048
     Dates: start: 20120605, end: 20120607
  3. EXALGO EXTENDED RELEASE [Suspect]
     Dosage: 16 mg, qd
     Route: 048
     Dates: start: 20120608, end: 20120609
  4. EXALGO EXTENDED RELEASE [Suspect]
     Dosage: 24 mg, qd
     Route: 048
     Dates: start: 20120610, end: 20120610
  5. EXALGO EXTENDED RELEASE [Suspect]
     Dosage: 16 mg, qd
     Route: 048
     Dates: start: 20120611, end: 20120715
  6. EXALGO EXTENDED RELEASE [Suspect]
     Dosage: 24 mg, qd
     Route: 048
     Dates: start: 20120716
  7. CODON [Concomitant]
     Indication: PAIN MANAGEMENT
     Dosage: 10 mg, bid
     Dates: start: 20120423, end: 20120508
  8. CODON [Concomitant]
     Dosage: 10 mg, tid (tablet)
     Dates: start: 20120509, end: 20120610
  9. DUPHALAC                           /00163401/ [Concomitant]
     Indication: CONSTIPATION
     Dosage: 30 ml, UNK
     Dates: start: 20120509
  10. MUTERAN [Concomitant]
     Indication: PRODUCTIVE COUGH
     Dosage: 1200 mg, UNK
     Dates: start: 20120512, end: 20120515
  11. AZEPTIN                            /00884001/ [Concomitant]
     Indication: COUGH
     Dosage: 2 mg, UNK
     Dates: start: 20120512, end: 20120515
  12. TRIAMCINOLONE [Concomitant]
     Indication: NERVE BLOCK
     Dosage: 40 mg/ml, UNK
     Dates: start: 20120514, end: 20120514
  13. LASIX                              /00032601/ [Concomitant]
     Indication: DIURETIC THERAPY
     Dosage: 20 mg, UNK
     Dates: start: 20120514, end: 20120515
  14. LASIX                              /00032601/ [Concomitant]
     Indication: OEDEMA
  15. SODIUM BICARBONATE [Concomitant]
     Indication: ACIDOSIS
     Dosage: 20 ml, UNK
     Dates: start: 20120514, end: 20120515
  16. EMCAINE [Concomitant]
     Indication: NERVE BLOCK
     Dosage: UNK

REACTIONS (3)
  - Metastatic pain [Recovered/Resolved]
  - Dizziness [Recovered/Resolved]
  - Asthenia [Recovered/Resolved]
